FAERS Safety Report 25138641 (Version 1)
Quarter: 2025Q1

REPORT INFORMATION
  Report Type: Spontaneous
  Country: TR (occurrence: TR)
  Receive Date: 20250330
  Receipt Date: 20250330
  Transmission Date: 20250409
  Serious: Yes (Other)
  Sender: AMGEN
  Company Number: TR-AMGEN-TURSP2025057987

PATIENT

DRUGS (3)
  1. ADALIMUMAB [Suspect]
     Active Substance: ADALIMUMAB
     Indication: Iridocyclitis
     Route: 058
  2. ADALIMUMAB [Suspect]
     Active Substance: ADALIMUMAB
     Indication: Uveitis
     Route: 058
  3. ADALIMUMAB [Suspect]
     Active Substance: ADALIMUMAB
     Indication: Chorioretinitis
     Dosage: UNK UNK, Q2WK
     Route: 058

REACTIONS (7)
  - Uveitis [Unknown]
  - Chorioretinitis [Unknown]
  - Iridocyclitis [Unknown]
  - Retinoschisis [Unknown]
  - Cataract [Unknown]
  - Glaucoma [Unknown]
  - Therapy non-responder [Unknown]
